FAERS Safety Report 20506030 (Version 1)
Quarter: 2022Q1

REPORT INFORMATION
  Report Type: Spontaneous
  Country: US (occurrence: None)
  Receive Date: 20220221
  Receipt Date: 20220221
  Transmission Date: 20220423
  Serious: No
  Sender: FDA-Public Use
  Company Number: None

PATIENT
  Age: 75 Year
  Sex: Female
  Weight: 65.25 kg

DRUGS (3)
  1. ALENDRONATE [Suspect]
     Active Substance: ALENDRONATE SODIUM
     Indication: Osteopenia
     Dosage: FREQUENCY : WEEKLY;?
     Route: 048
     Dates: start: 20220205, end: 20220219
  2. PREDNISONE [Concomitant]
     Active Substance: PREDNISONE
  3. Tylonel [Concomitant]

REACTIONS (4)
  - Eye pain [None]
  - Iritis [None]
  - Scleritis [None]
  - Therapy interrupted [None]

NARRATIVE: CASE EVENT DATE: 20220220
